FAERS Safety Report 21656637 (Version 1)
Quarter: 2022Q4

REPORT INFORMATION
  Report Type: Report from Study
  Country: AT (occurrence: AT)
  Receive Date: 20221129
  Receipt Date: 20221129
  Transmission Date: 20230113
  Serious: Yes (Other)
  Sender: FDA-Public Use
  Company Number: None

PATIENT
  Age: 48 Year
  Sex: Female
  Weight: 58 kg

DRUGS (49)
  1. CAPECITABINE [Suspect]
     Active Substance: CAPECITABINE
     Indication: HER2 positive breast cancer
     Dosage: MOST RECENT DOSE PRIOR TO AE 09-DEC-2021
     Dates: start: 20210109
  2. PACLITAXEL [Suspect]
     Active Substance: PACLITAXEL
     Indication: HER2 positive breast cancer
     Dosage: MOST RECENT DOSE PRIOR TO AE 12-SEP-2019
     Dates: start: 20190724
  3. TRASTUZUMAB [Suspect]
     Active Substance: TRASTUZUMAB
     Indication: HER2 positive breast cancer
     Dosage: MOST RECENT DOSE PRIOR TO AE 12-SEP-2019
     Dates: start: 20190724
  4. LAPATINIB [Suspect]
     Active Substance: LAPATINIB
     Indication: HER2 positive breast cancer
     Dates: start: 20200923, end: 20201228
  5. TRASTUZUMAB [Suspect]
     Active Substance: TRASTUZUMAB
     Indication: HER2 positive breast cancer
     Dosage: MOST RECENT DOSE PRIOR TO AE 31-JAN-2022
     Dates: start: 20220110
  6. PERTUZUMAB [Suspect]
     Active Substance: PERTUZUMAB
     Indication: HER2 positive breast cancer
     Dosage: MOST RECENT DOSE PRIOR TO AE 12-SEP-2019
     Dates: start: 20190724
  7. ADO-TRASTUZUMAB EMTANSINE [Suspect]
     Active Substance: ADO-TRASTUZUMAB EMTANSINE
     Indication: HER2 positive breast cancer
     Dates: start: 20191014, end: 20200518
  8. ALPRAZOLAM [Concomitant]
     Active Substance: ALPRAZOLAM
     Dosage: PRN
     Dates: start: 20190715
  9. OLANZAPINE [Concomitant]
     Active Substance: OLANZAPINE
     Dosage: OTHER 0-0-1/2
     Dates: start: 20190821, end: 20190904
  10. ZOFRAN [Concomitant]
     Active Substance: ONDANSETRON HYDROCHLORIDE
     Indication: COVID-19
     Dates: start: 20190705, end: 20190914
  11. AMOXICILLIN AND CLAVULANATE POTASSIUM [Concomitant]
     Active Substance: AMOXICILLIN\CLAVULANATE POTASSIUM
     Indication: Influenza
     Dates: start: 20200527, end: 20200602
  12. ACETAMINOPHEN [Concomitant]
     Active Substance: ACETAMINOPHEN
     Dosage: PRN
     Dates: start: 20190701
  13. EUTHYROX [Concomitant]
     Active Substance: LEVOTHYROXINE SODIUM
     Dates: end: 201906
  14. DRONABINOL [Concomitant]
     Active Substance: DRONABINOL
     Dosage: 2 DROP-2 DROP-2 DROP
     Dates: start: 20190716, end: 20210804
  15. LENDORM [Concomitant]
     Active Substance: BROTIZOLAM
     Indication: Insomnia
     Dosage: PRN
     Dates: start: 20211229
  16. CITALOPRAM [Concomitant]
     Active Substance: CITALOPRAM HYDROBROMIDE
     Dosage: ONGOING  CHECKED
     Dates: start: 20190715
  17. ACETAMINOPHEN [Concomitant]
     Active Substance: ACETAMINOPHEN
     Indication: COVID-19
     Dosage: PRN (AS NEEDED)
     Dates: start: 20210302, end: 20210303
  18. CEOLAT [Concomitant]
     Dosage: OTHER UPTO 3 X DAILY 10 ML
     Dates: start: 20190815
  19. LOPERAMIDE HYDROCHLORIDE [Concomitant]
     Active Substance: LOPERAMIDE HYDROCHLORIDE
     Indication: Diarrhoea
     Dosage: PRN
     Dates: start: 20210215
  20. SUCRALAN [Concomitant]
     Dosage: PRN
     Dates: start: 20190701
  21. NEURONTIN [Concomitant]
     Active Substance: GABAPENTIN
     Dates: start: 201908, end: 201908
  22. ASCORBIC ACID\CALCIUM PHOSPHATE\CHOLECALCIFEROL\CITRIC ACID MONOHYDRAT [Concomitant]
     Active Substance: ASCORBIC ACID\CALCIUM PHOSPHATE\CHOLECALCIFEROL\CITRIC ACID MONOHYDRATE
     Dosage: ONGOING CHECKED
     Dates: start: 20190717
  23. POLYETHYLENE GLYCOL 4000 [Concomitant]
     Active Substance: POLYETHYLENE GLYCOL 4000
     Dosage: ONGOING  CHECKED
     Dates: start: 20190705
  24. PANTOPRAZOLE SODIUM [Concomitant]
     Active Substance: PANTOPRAZOLE SODIUM
     Indication: COVID-19
     Dosage: ONGOING  CHECKED
     Dates: start: 20210222, end: 20210302
  25. HYDROMORPHONE HYDROCHLORIDE [Concomitant]
     Active Substance: HYDROMORPHONE HYDROCHLORIDE
     Dosage: PRN
     Dates: start: 20190716
  26. TRAZODONE HYDROCHLORIDE [Concomitant]
     Active Substance: TRAZODONE HYDROCHLORIDE
     Dates: start: 20190716, end: 20200926
  27. VALACYCLOVIR HYDROCHLORIDE [Concomitant]
     Active Substance: VALACYCLOVIR HYDROCHLORIDE
     Dates: start: 20190716, end: 20191011
  28. DEXAMETHASONE [Concomitant]
     Active Substance: DEXAMETHASONE
     Indication: COVID-19
     Dates: start: 20190705, end: 20190914
  29. LOVENOX [Concomitant]
     Active Substance: ENOXAPARIN SODIUM
     Indication: COVID-19
     Dates: start: 20210302, end: 20210305
  30. OLANZAPINE [Concomitant]
     Active Substance: OLANZAPINE
     Dosage: OTHER 0-0-1/2
     Dates: start: 20190904, end: 20200926
  31. DRONABINOL [Concomitant]
     Active Substance: DRONABINOL
     Dosage: ONGOING  CHECKED
     Dates: start: 20210705
  32. PANTOPRAZOLE SODIUM [Concomitant]
     Active Substance: PANTOPRAZOLE SODIUM
     Indication: COVID-19
     Dosage: ONGOING  CHECKED
     Dates: start: 20190701
  33. DEXAMETHASONE [Concomitant]
     Active Substance: DEXAMETHASONE
     Indication: COVID-19
     Dates: start: 20220111, end: 20220112
  34. DEXAMETHASONE [Concomitant]
     Active Substance: DEXAMETHASONE
     Indication: COVID-19
     Dates: start: 20220113, end: 20220114
  35. DEXAMETHASONE [Concomitant]
     Active Substance: DEXAMETHASONE
     Indication: COVID-19
     Dates: start: 20220110
  36. DEXAMETHASONE [Concomitant]
     Active Substance: DEXAMETHASONE
     Indication: COVID-19
     Dates: start: 20210302, end: 20210304
  37. DEXAMETHASONE [Concomitant]
     Active Substance: DEXAMETHASONE
     Indication: COVID-19
     Dates: start: 20220115, end: 20220323
  38. DEXAMETHASONE [Concomitant]
     Active Substance: DEXAMETHASONE
     Indication: COVID-19
     Dates: start: 20190704, end: 20190912
  39. HYDROMORPHONE HYDROCHLORIDE [Concomitant]
     Active Substance: HYDROMORPHONE HYDROCHLORIDE
     Dosage: PRN
     Dates: start: 20190716, end: 20200927
  40. HYDROMORPHONE HYDROCHLORIDE [Concomitant]
     Active Substance: HYDROMORPHONE HYDROCHLORIDE
     Dates: start: 20220207
  41. ZOFRAN [Concomitant]
     Active Substance: ONDANSETRON HYDROCHLORIDE
     Indication: COVID-19
     Dosage: PRN
     Dates: start: 20190704, end: 20200703
  42. ZOFRAN [Concomitant]
     Active Substance: ONDANSETRON HYDROCHLORIDE
     Indication: COVID-19
     Dates: start: 20220110
  43. ZOFRAN [Concomitant]
     Active Substance: ONDANSETRON HYDROCHLORIDE
     Indication: COVID-19
     Dates: start: 20210302, end: 20210302
  44. ZOFRAN [Concomitant]
     Active Substance: ONDANSETRON HYDROCHLORIDE
     Indication: COVID-19
     Dosage: PRN
     Dates: start: 20190701
  45. EUTHYROX [Concomitant]
     Active Substance: LEVOTHYROXINE SODIUM
     Dates: start: 20190703, end: 20200929
  46. EUTHYROX [Concomitant]
     Active Substance: LEVOTHYROXINE SODIUM
     Dates: start: 20200930, end: 20210108
  47. LAPATINIB [Suspect]
     Active Substance: LAPATINIB
     Indication: HER2 positive breast cancer
     Dosage: MOST RECENT DOSE PRIOR TO AE 16/DEC/2021
     Dates: start: 20210109
  48. ADO-TRASTUZUMAB EMTANSINE [Suspect]
     Active Substance: ADO-TRASTUZUMAB EMTANSINE
     Indication: HER2 positive breast cancer
     Dosage: MOST RECENT DOSE PRIOR TO AE 03/JUL/2020
     Dates: start: 20200703
  49. CAPECITABINE [Suspect]
     Active Substance: CAPECITABINE
     Indication: HER2 positive breast cancer
     Dates: start: 20200923, end: 20201220

REACTIONS (4)
  - Insomnia [Not Recovered/Not Resolved]
  - Gamma-glutamyltransferase increased [Not Recovered/Not Resolved]
  - Iron deficiency anaemia [Recovered/Resolved]
  - Intracranial pressure increased [Recovered/Resolved]

NARRATIVE: CASE EVENT DATE: 20211227
